FAERS Safety Report 18505571 (Version 2)
Quarter: 2020Q4

REPORT INFORMATION
  Report Type: Report from Study
  Country: US (occurrence: US)
  Receive Date: 20201116
  Receipt Date: 20201119
  Transmission Date: 20210114
  Serious: Yes (Other)
  Sender: FDA-Public Use
  Company Number: US-SA-2020SA313734

PATIENT

DRUGS (1)
  1. DUPILUMAB [Suspect]
     Active Substance: DUPILUMAB
     Indication: ASTHMA
     Dosage: 600 MG, 1X
     Dates: start: 20201021, end: 20201021

REACTIONS (8)
  - Cough [Unknown]
  - Oral herpes [Recovered/Resolved]
  - Product dose omission issue [Unknown]
  - Stomatitis [Unknown]
  - Injection site bruising [Recovered/Resolved]
  - Oropharyngeal pain [Recovered/Resolved]
  - Herpes ophthalmic [Recovered/Resolved]
  - Wheezing [Unknown]

NARRATIVE: CASE EVENT DATE: 2020
